FAERS Safety Report 6054525-6 (Version None)
Quarter: 2009Q1

REPORT INFORMATION
  Report Type: 
  Country: None (occurrence: None)
  Receive Date: 20090127
  Receipt Date: 20090120
  Transmission Date: 20090719
  Serious: Yes (Other)
  Sender: FDA-Public Use
  Company Number: PHHY2009BR02098

PATIENT
  Age: 28 Year
  Sex: Female

DRUGS (1)
  1. TRILEPTAL [Suspect]

REACTIONS (6)
  - ASTHENIA [None]
  - DIARRHOEA [None]
  - SOMNOLENCE [None]
  - SWELLING [None]
  - URINARY RETENTION [None]
  - VOMITING [None]
